FAERS Safety Report 15426504 (Version 1)
Quarter: 2018Q3

REPORT INFORMATION
  Report Type: Spontaneous
  Country: US (occurrence: US)
  Receive Date: 20180925
  Receipt Date: 20180925
  Transmission Date: 20181010
  Serious: No
  Sender: FDA-Public Use
  Company Number: US-INDIVIOR LIMITED-INDV-105450-2017

PATIENT
  Sex: Female

DRUGS (1)
  1. SUBOXONE [Suspect]
     Active Substance: BUPRENORPHINE HYDROCHLORIDE\NALOXONE HYDROCHLORIDE
     Indication: DRUG DEPENDENCE
     Dosage: 16 MG (8MG 2 FILMS), QD
     Route: 060
     Dates: start: 2016

REACTIONS (5)
  - Pain [Unknown]
  - Nausea [Unknown]
  - Dysgeusia [Unknown]
  - Feeling abnormal [Unknown]
  - Drug ineffective [Unknown]
